FAERS Safety Report 4658775-2 (Version None)
Quarter: 2005Q2

REPORT INFORMATION
  Report Type: 
  Country: None (occurrence: None)
  Receive Date: 20050509
  Receipt Date: 20050426
  Transmission Date: 20051028
  Serious: Yes (Hospitalization)
  Sender: FDA-Public Use
  Company Number: 2005061658

PATIENT
  Age: 81 Year
  Sex: Male
  Weight: 64.1 kg

DRUGS (7)
  1. SULPERAZON (SULBACTAM, CEFOPERAZONE) [Suspect]
     Indication: CHOLANGITIS ACUTE
     Dosage: 2 GRAM (1 GRAM, 2 IN 1 D), INTRAVENOUS
     Route: 042
     Dates: start: 20050218, end: 20050224
  2. FAMOTIDINE [Suspect]
     Indication: GASTRITIS
     Dosage: 40 MG (20 MG, 2 IN 1 D), INTRAVENOUS
     Route: 042
     Dates: start: 20050218, end: 20050220
  3. GLUCAGON [Concomitant]
  4. INSULIN [Concomitant]
  5. URSODIOL [Concomitant]
  6. STRONG NEO-MINOPHAGEN C (AMINOACETIC ACID, CYSTEINE, GLYCYRRHIZIC ACID [Concomitant]
  7. PHENOBARBITAL TAB [Concomitant]

REACTIONS (3)
  - INFLUENZA [None]
  - JAUNDICE CHOLESTATIC [None]
  - PRURIGO [None]
